FAERS Safety Report 20758885 (Version 1)
Quarter: 2022Q2

REPORT INFORMATION
  Report Type: Spontaneous
  Country: US (occurrence: US)
  Receive Date: 20220427
  Receipt Date: 20220427
  Transmission Date: 20220721
  Serious: No
  Sender: FDA-Public Use
  Company Number: US-PFIZER INC-202101403952

PATIENT
  Age: 77 Year
  Sex: Female

DRUGS (2)
  1. METHOTREXATE SODIUM [Suspect]
     Active Substance: METHOTREXATE SODIUM
     Dosage: 8 PILLS, WEEKLY
  2. PREDNISONE [Suspect]
     Active Substance: PREDNISONE
     Dosage: UNK

REACTIONS (2)
  - Fatigue [Unknown]
  - Asthenia [Unknown]
